FAERS Safety Report 5643777-X (Version None)
Quarter: 2008Q1

REPORT INFORMATION
  Report Type: 
  Country: None (occurrence: None)
  Receive Date: 20080226
  Receipt Date: 20080215
  Transmission Date: 20080703
  Serious: Yes (Other)
  Sender: FDA-Public Use
  Company Number: PAR_02091_2008

PATIENT
  Sex: Female
  Weight: 68.0396 kg

DRUGS (4)
  1. TRANYLCYPROMINE SULFATE [Suspect]
     Indication: DEPRESSION
     Dosage: (10 MG TID ORAL)
     Route: 048
     Dates: start: 20071125, end: 20071201
  2. TRANYLCYPROMINE SULFATE [Suspect]
     Indication: DEPRESSION
     Dosage: (10 MG TID ORAL)
     Route: 048
     Dates: start: 20071101, end: 20071125
  3. TRANYLCYPROMINE SULFATE [Suspect]
     Indication: DEPRESSION
     Dosage: (15 MG ORAL)
     Route: 048
     Dates: start: 20071201
  4. LIPITOR [Concomitant]

REACTIONS (1)
  - DRUG HYPERSENSITIVITY [None]
